FAERS Safety Report 6504600-4 (Version None)
Quarter: 2009Q4

REPORT INFORMATION
  Report Type: 
  Country: None (occurrence: None)
  Receive Date: 20091215
  Receipt Date: 20091204
  Transmission Date: 20100525
  Serious: Yes (Hospitalization)
  Sender: FDA-Public Use
  Company Number: 2009AC000481

PATIENT
  Age: 67 Year
  Sex: Female

DRUGS (14)
  1. DIGOXIN [Suspect]
     Dosage: PO
     Route: 048
  2. METFORMIN [Concomitant]
  3. GLIPIZIDE [Concomitant]
  4. BACTRIM DS [Concomitant]
  5. PLAVIX [Concomitant]
  6. VYTORIN [Concomitant]
  7. LASIX [Concomitant]
  8. K-DUR [Concomitant]
  9. VICODIN [Concomitant]
  10. ASPIRIN [Concomitant]
  11. XOPENEX [Concomitant]
  12. PACERONE [Concomitant]
  13. XANAX [Concomitant]
  14. OXYGEN [Concomitant]

REACTIONS (10)
  - ANXIETY DISORDER [None]
  - CARDIAC FAILURE CONGESTIVE [None]
  - CORONARY ARTERY DISEASE [None]
  - DIABETES MELLITUS [None]
  - DYSPNOEA [None]
  - HYPERCHOLESTEROLAEMIA [None]
  - HYPERTENSION [None]
  - PERIPHERAL VASCULAR DISORDER [None]
  - PLEURAL EFFUSION [None]
  - PRODUCTIVE COUGH [None]
